FAERS Safety Report 5561842-2 (Version None)
Quarter: 2007Q4

REPORT INFORMATION
  Report Type: 
  Country: None (occurrence: None)
  Receive Date: 20071215
  Receipt Date: 20071008
  Transmission Date: 20080405
  Serious: No
  Sender: FDA-Public Use
  Company Number: US-AMGEN-KDL245358

PATIENT
  Sex: Female

DRUGS (5)
  1. ENBREL [Suspect]
     Indication: RHEUMATOID ARTHRITIS
     Route: 058
     Dates: start: 19940101
  2. MOBIC [Concomitant]
     Dates: start: 20010301
  3. DARVOCET [Concomitant]
     Dates: start: 19990101
  4. NEXIUM [Concomitant]
     Dates: start: 20070101
  5. SKELAXIN [Concomitant]
     Dates: start: 20040101

REACTIONS (6)
  - BACK PAIN [None]
  - INTERVERTEBRAL DISC PROTRUSION [None]
  - LUMBAR SPINAL STENOSIS [None]
  - RENAL CYST [None]
  - SCOLIOSIS [None]
  - SPONDYLOLISTHESIS [None]
